FAERS Safety Report 23942610 (Version 1)
Quarter: 2024Q2

REPORT INFORMATION
  Report Type: Report from Study
  Country: CA (occurrence: CA)
  Receive Date: 20240605
  Receipt Date: 20240605
  Transmission Date: 20240716
  Serious: Yes (Death, Hospitalization, Other)
  Sender: FDA-Public Use
  Company Number: CA-TAIHOP-2024-005516

PATIENT
  Age: 53 Year
  Sex: Male

DRUGS (1)
  1. LONSURF [Suspect]
     Active Substance: TIPIRACIL HYDROCHLORIDE\TRIFLURIDINE
     Indication: Colorectal cancer metastatic
     Dosage: FORM STRENGTH, DOSE, FREQUENCY AND CYCLE WERE UNKNOWN.
     Route: 048
     Dates: start: 20240518

REACTIONS (3)
  - Death [Fatal]
  - Hypotension [Unknown]
  - Renal failure [Unknown]

NARRATIVE: CASE EVENT DATE: 20240527
